FAERS Safety Report 9422701 (Version 1)
Quarter: 2013Q3

REPORT INFORMATION
  Report Type: Spontaneous
  Country: US (occurrence: US)
  Receive Date: 20130726
  Receipt Date: 20130726
  Transmission Date: 20140515
  Serious: No
  Sender: FDA-Public Use
  Company Number: US-MYLANLABS-2013S1010017

PATIENT
  Age: 6 Year
  Sex: Female
  Weight: 33.57 kg

DRUGS (4)
  1. CLONIDINE HYDROCHLORIDE [Suspect]
     Indication: INSOMNIA
     Route: 048
     Dates: start: 201305
  2. CLONIDINE HYDROCHLORIDE [Suspect]
     Indication: OFF LABEL USE
     Route: 048
     Dates: start: 201305
  3. DEPAKENE [Concomitant]
     Dosage: HAS TAKEN FOR YEARS
     Route: 048
  4. VITAMIN D [Concomitant]
     Route: 048
     Dates: start: 201305

REACTIONS (5)
  - Accidental exposure to product by child [Recovered/Resolved]
  - Blood pressure decreased [Recovered/Resolved]
  - Glassy eyes [Recovered/Resolved]
  - Headache [Recovered/Resolved]
  - Fatigue [Recovered/Resolved]
